FAERS Safety Report 6600461-3 (Version None)
Quarter: 2010Q1

REPORT INFORMATION
  Report Type: 
  Country: None (occurrence: None)
  Receive Date: 20100223
  Receipt Date: 20100223
  Transmission Date: 20100710
  Serious: No
  Sender: FDA-Public Use
  Company Number: None

PATIENT
  Age: 41 Year
  Sex: Female
  Weight: 52.1637 kg

DRUGS (2)
  1. DYSPORT [Suspect]
     Indication: SKIN WRINKLING
     Dosage: FIRST TIME
     Dates: start: 20091202, end: 20091202
  2. DYSPORT [Suspect]
     Indication: SKIN WRINKLING
     Dosage: FIRST TIME
     Dates: start: 20091216, end: 20091216

REACTIONS (9)
  - DEPRESSION [None]
  - FAMILY STRESS [None]
  - FAT TISSUE INCREASED [None]
  - INCORRECT DOSE ADMINISTERED [None]
  - MUSCLE INJURY [None]
  - SKIN DISORDER [None]
  - SKIN WRINKLING [None]
  - SWELLING FACE [None]
  - VISION BLURRED [None]
